FAERS Safety Report 4663816-2 (Version None)
Quarter: 2005Q2

REPORT INFORMATION
  Report Type: 
  Country: None (occurrence: None)
  Receive Date: 20050511
  Receipt Date: 20050414
  Transmission Date: 20051028
  Serious: No
  Sender: FDA-Public Use
  Company Number: 402210

PATIENT
  Age: 62 Year
  Sex: Female
  Weight: 57.6 kg

DRUGS (2)
  1. PEGASYS [Suspect]
     Indication: HEPATITIS C VIRUS
     Dosage: 180 MCG/ML 1 PER WEEK SUBCUTANEOUS
     Route: 058
     Dates: start: 20040820
  2. COPEGUS [Suspect]
     Indication: HEPATITIS C VIRUS
     Dosage: 4 DOSE FORM DAILY ORAL
     Route: 048
     Dates: start: 20040820

REACTIONS (1)
  - ANAEMIA [None]
